FAERS Safety Report 10223842 (Version 1)
Quarter: 2014Q2

REPORT INFORMATION
  Report Type: Spontaneous
  Country: DE (occurrence: DE)
  Receive Date: 20140609
  Receipt Date: 20140609
  Transmission Date: 20141212
  Serious: Yes (Life-Threatening, Hospitalization, Other)
  Sender: FDA-Public Use
  Company Number: DE-JNJFOC-20140601460

PATIENT
  Age: 86 Year
  Sex: Female
  Weight: 62 kg

DRUGS (8)
  1. XARELTO [Suspect]
     Indication: CEREBROVASCULAR ACCIDENT PROPHYLAXIS
     Route: 048
     Dates: start: 20140224, end: 20140315
  2. XARELTO [Suspect]
     Indication: ATRIAL FIBRILLATION
     Route: 048
     Dates: start: 20140224, end: 20140315
  3. RAMIPRIL [Concomitant]
     Route: 065
  4. FUROSEMID [Concomitant]
     Route: 065
  5. SIMVASTATIN [Concomitant]
     Route: 065
  6. GLIMEPIRIDE [Concomitant]
     Route: 065
  7. METAMIZOL [Concomitant]
     Route: 065
  8. CALCIMAGON-D3 [Concomitant]
     Route: 065

REACTIONS (2)
  - Cerebral amyloid angiopathy [Unknown]
  - Cerebral haemorrhage [Recovering/Resolving]
